FAERS Safety Report 8096428-1 (Version None)
Quarter: 2012Q1

REPORT INFORMATION
  Report Type: 
  Country: None (occurrence: None)
  Receive Date: 20120129
  Receipt Date: 20111214
  Transmission Date: 20120608
  Serious: Yes (Other)
  Sender: FDA-Public Use
  Company Number: US-ABBOTT-11P-163-0883048-00

PATIENT
  Sex: Male

DRUGS (1)
  1. HUMIRA [Suspect]
     Indication: PSORIASIS
     Dates: start: 20090701

REACTIONS (5)
  - IMPAIRED WORK ABILITY [None]
  - FEELING ABNORMAL [None]
  - LEUKAEMIA RECURRENT [None]
  - INFLUENZA LIKE ILLNESS [None]
  - LEUKAEMIA [None]
